FAERS Safety Report 9922262 (Version 2)
Quarter: 2014Q2

REPORT INFORMATION
  Report Type: Spontaneous
  Country: US (occurrence: US)
  Receive Date: 20140225
  Receipt Date: 20140516
  Transmission Date: 20141212
  Serious: Yes (Death, Hospitalization)
  Sender: FDA-Public Use
  Company Number: US-GLAXOSMITHKLINE-A1030516A

PATIENT
  Age: 68 Year
  Sex: Female
  Weight: 67.8 kg

DRUGS (1)
  1. AVANDIA [Suspect]
     Indication: DIABETES MELLITUS
     Dosage: 4MG PER DAY
     Route: 048
     Dates: start: 2000, end: 2004

REACTIONS (4)
  - Pneumonia [Fatal]
  - Cardiac failure congestive [Unknown]
  - Atrial fibrillation [Unknown]
  - Ischaemic cardiomyopathy [Unknown]
